FAERS Safety Report 6327199-4 (Version None)
Quarter: 2009Q3

REPORT INFORMATION
  Report Type: 
  Country: None (occurrence: None)
  Receive Date: 20090825
  Receipt Date: 20090817
  Transmission Date: 20100115
  Serious: Yes (Other)
  Sender: FDA-Public Use
  Company Number: US-AVENTIS-200913466US

PATIENT
  Sex: Male
  Weight: 72.27 kg

DRUGS (25)
  1. LANTUS [Suspect]
     Dosage: DOSE: 10 U DAILY USUALLY, USES A SLIDING SCALE
     Route: 058
     Dates: start: 20010101
  2. LANTUS [Suspect]
     Dosage: DOSE: 6 UNITS OR LESS AT 10:00 AM
     Route: 058
  3. OPTICLIK (INSULIN INJECTION PEN) [Suspect]
  4. GLYBURIDE [Concomitant]
     Dosage: DOSE: UNK
  5. ADALAT CC/NIFEDIAC CC [Concomitant]
     Indication: BLOOD PRESSURE
  6. ATIVAN [Concomitant]
     Indication: ANXIETY
     Dosage: DOSE: 1 MG BID
  7. ASPIRIN [Concomitant]
  8. CATAPRES                           /00171101/ [Concomitant]
     Indication: BLOOD PRESSURE
  9. COREG [Concomitant]
  10. CRESTOR [Concomitant]
  11. IRON [Concomitant]
     Dosage: DOSE: ADMINISTERED BY DIALYSIS CENTER
  12. FLOMAX [Concomitant]
     Indication: PROSTATIC DISORDER
  13. GLIPIZIDE [Concomitant]
     Indication: BLOOD GLUCOSE ABNORMAL
  14. LASIX [Concomitant]
  15. EFFEXOR [Concomitant]
     Indication: ANTIDEPRESSANT THERAPY
  16. LORCET-HD [Concomitant]
     Dosage: DOSE: 7.5/650 (1) 4 TIMES DAILY
  17. PLAVIX [Concomitant]
     Indication: THROMBOSIS PROPHYLAXIS
  18. EPOGEN [Concomitant]
     Dosage: DOSE: ADMINISTERED AT DIALYSIS CENTER
  19. NEPHRO-VITE                        /01719801/ [Concomitant]
     Indication: VITAMIN SUPPLEMENTATION
     Dosage: DOSE: CYPRESS PH (1 TAB DAILY)
  20. SENSIPAR [Concomitant]
     Indication: THYROID DISORDER
  21. ACIPHEX [Concomitant]
  22. PROCHLORPERAZIN [Concomitant]
     Indication: PROPHYLAXIS OF NAUSEA AND VOMITING
  23. ERYTHROMED [Concomitant]
     Indication: PARESIS
  24. B6 NATURAL VITAMINS [Concomitant]
  25. B6 NATURAL VITAMINS [Concomitant]

REACTIONS (7)
  - ABDOMINAL DISCOMFORT [None]
  - BLOOD GLUCOSE DECREASED [None]
  - BLOOD GLUCOSE INCREASED [None]
  - CEREBROVASCULAR ACCIDENT [None]
  - GALLBLADDER DISORDER [None]
  - HEMIPARESIS [None]
  - MYOCARDIAL INFARCTION [None]
